FAERS Safety Report 17875471 (Version 1)
Quarter: 2020Q2

REPORT INFORMATION
  Report Type: Spontaneous
  Country: US (occurrence: US)
  Receive Date: 20200609
  Receipt Date: 20200609
  Transmission Date: 20200714
  Serious: No
  Sender: FDA-Public Use
  Company Number: None

PATIENT
  Age: 37 Year
  Sex: Female
  Weight: 88.9 kg

DRUGS (1)
  1. LEVOTHYROXINE 150MCG [Suspect]
     Active Substance: LEVOTHYROXINE

REACTIONS (5)
  - Therapeutic response decreased [None]
  - Product formulation issue [None]
  - Exposure during pregnancy [None]
  - Malabsorption [None]
  - Pregnancy [None]
